FAERS Safety Report 11643452 (Version 1)
Quarter: 2015Q4

REPORT INFORMATION
  Report Type: Spontaneous
  Country: CA (occurrence: CA)
  Receive Date: 20151020
  Receipt Date: 20151020
  Transmission Date: 20160304
  Serious: Yes (Other)
  Sender: FDA-Public Use
  Company Number: CA-NOVOPROD-467091

PATIENT
  Age: 61 Year
  Sex: Male

DRUGS (7)
  1. DIOVAN [Concomitant]
     Active Substance: VALSARTAN
  2. METFORMIN [Concomitant]
     Active Substance: METFORMIN HYDROCHLORIDE
  3. NOVORAPID [Concomitant]
     Active Substance: INSULIN ASPART
  4. INVOKANA [Concomitant]
     Active Substance: CANAGLIFLOZIN
  5. VICTOZA [Suspect]
     Active Substance: LIRAGLUTIDE
     Indication: DIABETES MELLITUS
     Dosage: 1.8 MG, QD (MULTIDOSE PEN-INJECTOR)
     Route: 058
  6. PANTOPRAZOLE [Concomitant]
     Active Substance: PANTOPRAZOLE SODIUM
  7. LANTUS [Concomitant]
     Active Substance: INSULIN GLARGINE
     Route: 058

REACTIONS (6)
  - Flatulence [Unknown]
  - Lymphadenopathy [Unknown]
  - Off label use [Unknown]
  - Polyp [Unknown]
  - Red blood cell sedimentation rate increased [Unknown]
  - Pain [Unknown]
